FAERS Safety Report 4806717-9 (Version None)
Quarter: 2005Q4

REPORT INFORMATION
  Report Type: 
  Country: None (occurrence: None)
  Receive Date: 20051019
  Receipt Date: 20051007
  Transmission Date: 20060501
  Serious: Yes (Other)
  Sender: FDA-Public Use
  Company Number: 2005139461

PATIENT
  Age: 46 Year
  Sex: Male

DRUGS (17)
  1. NEURONTIN [Suspect]
     Indication: ABNORMAL BEHAVIOUR
     Dosage: 900 MG (2 IN 1 D)
     Dates: start: 20010101
  2. NEURONTIN [Suspect]
     Indication: INTRACRANIAL INJURY
     Dosage: 900 MG (2 IN 1 D)
     Dates: start: 20010101
  3. KEPPRA [Suspect]
     Indication: AFFECTIVE DISORDER
     Dosage: 1000 MG (500 MG, BID INTERVAL:EVERY DAY)
     Dates: start: 20050815
  4. DARVON [Suspect]
     Indication: BACK PAIN
     Dosage: 130 MG (130 MG, PRN)
  5. NAPROXEN [Concomitant]
  6. ACETAMINOPHEN [Concomitant]
  7. RISPERDAL [Concomitant]
  8. DEPAKOTE [Concomitant]
  9. LIPITOR (ATORGASTATIN) [Concomitant]
  10. PROVIGIL [Concomitant]
  11. LOTREL [Concomitant]
  12. STOOL SOFTENER (DOCUSATE SODIUM) [Concomitant]
  13. FIBERLAX (POLYCARBOPYHIL) [Concomitant]
  14. IMODIUM [Concomitant]
  15. ATIVAN [Concomitant]
  16. FAMOTIDINE [Concomitant]
  17. ARTHROTEC [Concomitant]

REACTIONS (3)
  - DRUG INTERACTION [None]
  - EYE SWELLING [None]
  - TRANSIENT ISCHAEMIC ATTACK [None]
